FAERS Safety Report 8539488-3 (Version None)
Quarter: 2012Q3

REPORT INFORMATION
  Report Type: 
  Country: None (occurrence: None)
  Receive Date: 20120726
  Receipt Date: 20120717
  Transmission Date: 20120928
  Serious: Yes (Other)
  Sender: FDA-Public Use
  Company Number: BR-US-EMD SERONO, INC.-7116591

PATIENT
  Sex: Male

DRUGS (2)
  1. SAIZEN [Suspect]
     Indication: GROWTH HORMONE DEFICIENCY
     Dosage: 8 MG (24 UI)
     Dates: start: 20111017, end: 20111030
  2. SAIZEN [Suspect]
     Dosage: 8 MG (24 UI)
     Dates: start: 20120215, end: 20120229

REACTIONS (2)
  - HYPERTENSION [None]
  - MALAISE [None]
